FAERS Safety Report 5054419-9 (Version None)
Quarter: 2006Q3

REPORT INFORMATION
  Report Type: 
  Country: None (occurrence: None)
  Receive Date: 20060718
  Receipt Date: 20060627
  Transmission Date: 20061208
  Serious: Yes (Hospitalization)
  Sender: FDA-Public Use
  Company Number: GR-SANOFI-SYNTHELABO-A01200604939

PATIENT
  Age: 71 Year
  Sex: Male

DRUGS (4)
  1. BIRACETAM [Concomitant]
     Indication: MEMORY IMPAIRMENT
     Dosage: UNK
     Route: 048
  2. PLAVIX [Suspect]
     Indication: ISCHAEMIC STROKE
     Dosage: UNK
     Route: 048
     Dates: end: 20060601
  3. PLAVIX [Suspect]
     Indication: ANEURYSM
     Dosage: UNK
     Route: 048
     Dates: end: 20060601
  4. PLAVIX [Suspect]
     Indication: THROMBOSIS
     Dosage: UNK
     Route: 048
     Dates: end: 20060601

REACTIONS (4)
  - BLOOD BILIRUBIN UNCONJUGATED INCREASED [None]
  - HAEMATURIA [None]
  - INTERNATIONAL NORMALISED RATIO INCREASED [None]
  - NEPHROLITHIASIS [None]
